FAERS Safety Report 4483895-5 (Version None)
Quarter: 2004Q4

REPORT INFORMATION
  Report Type: 
  Country: None (occurrence: None)
  Receive Date: 20041025
  Receipt Date: 20041004
  Transmission Date: 20050328
  Serious: Yes (Disabling, Other)
  Sender: FDA-Public Use
  Company Number: GBWYE062223SEP04

PATIENT
  Sex: Male
  Weight: 91 kg

DRUGS (11)
  1. ENBREL [Suspect]
     Indication: RHEUMATOID ARTHRITIS
     Route: 058
     Dates: start: 20010201, end: 20040401
  2. ENBREL [Interacting]
     Route: 058
     Dates: start: 20040101, end: 20040630
  3. METHOTREXATE [Interacting]
     Indication: RHEUMATOID ARTHRITIS
     Route: 058
     Dates: start: 20010201, end: 20040630
  4. PREDNISOLONE [Concomitant]
     Indication: RHEUMATOID ARTHRITIS
     Route: 048
     Dates: start: 20010201
  5. CELEBREX [Concomitant]
     Indication: RHEUMATOID ARTHRITIS
     Dosage: 200 TWICE DAILY (UNITS NOT SPECIFIED)
     Route: 048
  6. DOMPERIDONE [Concomitant]
     Indication: RHEUMATOID ARTHRITIS
  7. CARDURA [Concomitant]
     Indication: RHEUMATOID ARTHRITIS
  8. FOSAMAX [Concomitant]
     Indication: RHEUMATOID ARTHRITIS
     Dosage: 70MG WEEKLY
  9. FOLIC ACID [Concomitant]
     Indication: RHEUMATOID ARTHRITIS
     Route: 048
     Dates: start: 20010201
  10. DF118 [Concomitant]
     Indication: RHEUMATOID ARTHRITIS
     Route: 048
  11. RISEDRONATE SODIUM [Concomitant]
     Indication: RHEUMATOID ARTHRITIS
     Route: 048

REACTIONS (4)
  - DRUG INTERACTION [None]
  - HAEMOPHILUS INFECTION [None]
  - LOWER RESPIRATORY TRACT INFECTION [None]
  - PNEUMONIA [None]
